FAERS Safety Report 13078942 (Version 2)
Quarter: 2017Q1

REPORT INFORMATION
  Report Type: Spontaneous
  Country: TW (occurrence: TW)
  Receive Date: 20170102
  Receipt Date: 20170114
  Transmission Date: 20170428
  Serious: Yes (Other)
  Sender: FDA-Public Use
  Company Number: TW-AMGEN-TWNSP2016185071

PATIENT
  Age: 45 Year
  Sex: Female

DRUGS (1)
  1. ENBREL [Suspect]
     Active Substance: ETANERCEPT
     Indication: RHEUMATOID ARTHRITIS
     Dosage: 25 MG, 7 DOSES PER MONTH
     Route: 058
     Dates: start: 20161212

REACTIONS (4)
  - Rash [Recovering/Resolving]
  - C-reactive protein increased [Not Recovered/Not Resolved]
  - Pruritus [Not Recovered/Not Resolved]
  - Red blood cell sedimentation rate increased [Not Recovered/Not Resolved]

NARRATIVE: CASE EVENT DATE: 20161212
